FAERS Safety Report 5086749-9 (Version None)
Quarter: 2006Q3

REPORT INFORMATION
  Report Type: 
  Country: None (occurrence: None)
  Receive Date: 20060823
  Receipt Date: 20060815
  Transmission Date: 20061208
  Serious: Yes (Other)
  Sender: FDA-Public Use
  Company Number: GB-JNJFOC-20060803956

PATIENT
  Age: 7 Decade
  Sex: Female

DRUGS (3)
  1. RISPERDAL [Suspect]
     Indication: SCHIZOPHRENIA
     Dosage: TOTAL 10MG PER DAY
     Route: 065
  2. HALOPERIDOL [Suspect]
     Indication: SCHIZOPHRENIA
     Route: 065
  3. FUROSEMIDE [Suspect]
     Indication: SCHIZOPHRENIA
     Route: 065

REACTIONS (1)
  - NEUTROPENIA [None]
